FAERS Safety Report 7177821-8 (Version None)
Quarter: 2010Q4

REPORT INFORMATION
  Report Type: 
  Country: None (occurrence: None)
  Receive Date: 20101220
  Receipt Date: 20101207
  Transmission Date: 20110411
  Serious: Yes (Life-Threatening)
  Sender: FDA-Public Use
  Company Number: FR-GENENTECH-311140

PATIENT
  Sex: Male
  Weight: 73 kg

DRUGS (13)
  1. RITUXIMAB [Suspect]
     Indication: MANTLE CELL LYMPHOMA
     Dosage: 945 MG, QAM
     Route: 041
     Dates: start: 20100428
  2. CARMUSTINE [Suspect]
     Indication: MANTLE CELL LYMPHOMA
     Dosage: 567 MG, QAM
     Route: 065
     Dates: start: 20100429
  3. ETOPOSIDE [Suspect]
     Indication: MANTLE CELL LYMPHOMA
     Dosage: 378 MG, QAM
     Route: 065
     Dates: start: 20100430, end: 20100503
  4. CYTARABINE [Suspect]
     Indication: MANTLE CELL LYMPHOMA
     Dosage: 756 MG, QAM
     Route: 065
     Dates: start: 20100430, end: 20100503
  5. MELPHALAN [Suspect]
     Indication: MANTLE CELL LYMPHOMA
     Dosage: 285 MG, QAM
     Route: 065
     Dates: start: 20100504
  6. DEXAMETHASONE [Concomitant]
     Indication: PRODUCT USED FOR UNKNOWN INDICATION
     Dosage: UNK
     Dates: start: 20100112
  7. CISPLATIN [Concomitant]
     Indication: PRODUCT USED FOR UNKNOWN INDICATION
     Dosage: UNK
     Dates: start: 20100112
  8. BACTRIM [Concomitant]
     Indication: PRODUCT USED FOR UNKNOWN INDICATION
     Dosage: UNK
     Dates: start: 20100517, end: 20100527
  9. CANCIDAS [Concomitant]
     Indication: PRODUCT USED FOR UNKNOWN INDICATION
     Dosage: UNK
     Dates: start: 20100511, end: 20100516
  10. ZOVIRAX [Concomitant]
     Indication: PRODUCT USED FOR UNKNOWN INDICATION
     Dosage: UNK
     Dates: start: 20100519
  11. TIENAM [Concomitant]
     Indication: PRODUCT USED FOR UNKNOWN INDICATION
     Dosage: UNK
     Dates: start: 20100514, end: 20100527
  12. VFEND [Concomitant]
     Indication: PRODUCT USED FOR UNKNOWN INDICATION
     Dosage: UNK
     Dates: start: 20100518, end: 20100524
  13. CEFTAZIDIME (FORTAZ) [Concomitant]
     Indication: PRODUCT USED FOR UNKNOWN INDICATION
     Dosage: UNK
     Dates: start: 20100522, end: 20100527

REACTIONS (4)
  - ENCEPHALITIS HERPES [None]
  - MUCOSAL INFLAMMATION [None]
  - STAPHYLOCOCCAL SEPSIS [None]
  - TOXIC ENCEPHALOPATHY [None]
